FAERS Safety Report 6440231-2 (Version None)
Quarter: 2009Q4

REPORT INFORMATION
  Report Type: 
  Country: None (occurrence: None)
  Receive Date: 20091113
  Receipt Date: 20091103
  Transmission Date: 20100525
  Serious: Yes (Hospitalization)
  Sender: FDA-Public Use
  Company Number: KR-PFIZER INC-2009292757

PATIENT
  Age: 77 Year
  Sex: Female

DRUGS (2)
  1. NEURONTIN [Suspect]
     Dosage: 600 MG, 1X/DAY
     Route: 048
  2. NEURONTIN [Suspect]
     Dosage: 600 MG, 2X/DAY
     Route: 048

REACTIONS (4)
  - FALL [None]
  - MUSCULAR WEAKNESS [None]
  - PAIN [None]
  - PRODUCTIVE COUGH [None]
